FAERS Safety Report 8422535-7 (Version None)
Quarter: 2012Q2

REPORT INFORMATION
  Report Type: 
  Country: None (occurrence: None)
  Receive Date: 20120608
  Receipt Date: 20120524
  Transmission Date: 20120825
  Serious: Yes (Hospitalization, Other)
  Sender: FDA-Public Use
  Company Number: GB-TEVA-337164ISR

PATIENT
  Age: 67 Year
  Sex: Female

DRUGS (9)
  1. DURAGESIC-100 [Concomitant]
  2. FOLIC ACID [Concomitant]
  3. TEMAZEPAM [Concomitant]
  4. CACIT VITAMIN D3 [Concomitant]
  5. CITALOPRAM HYDROBROMIDE [Concomitant]
  6. ACETAMINOPHEN AND CODEINE PHOSPHATE [Concomitant]
  7. UNIPHYL [Concomitant]
  8. ALENDRONATE SODIUM [Suspect]
  9. DIAZEPAM [Concomitant]

REACTIONS (1)
  - EPISTAXIS [None]
